FAERS Safety Report 15698626 (Version 1)
Quarter: 2018Q4

REPORT INFORMATION
  Report Type: Spontaneous
  Country: US (occurrence: US)
  Receive Date: 20181126
  Receipt Date: 20181126
  Transmission Date: 20190205
  Serious: Yes (Hospitalization, Disabling, Other)
  Sender: FDA-Public Use
  Company Number: None

PATIENT
  Age: 54 Year
  Sex: Female
  Weight: 55.35 kg

DRUGS (7)
  1. CODEINE [Concomitant]
     Active Substance: CODEINE
  2. WOMEN^S ONE A DAY VITAMIN [Concomitant]
  3. GLUCOSAMINE [Concomitant]
     Active Substance: GLUCOSAMINE
  4. INDOMETHACIN. [Concomitant]
     Active Substance: INDOMETHACIN
  5. LEVOFLOXACIN. [Suspect]
     Active Substance: LEVOFLOXACIN
     Indication: OSTEOMYELITIS
     Dosage: ?          QUANTITY:14 TABLET(S);?
     Route: 048
     Dates: start: 20180619, end: 20180621
  6. ESTRADIOL TRANSDERMAL SYSTEM [Concomitant]
     Active Substance: ESTRADIOL
  7. EPIPEN [Concomitant]
     Active Substance: EPINEPHRINE

REACTIONS (4)
  - Swollen tongue [None]
  - Hypoaesthesia [None]
  - Migraine [None]
  - Cerebrovascular accident [None]

NARRATIVE: CASE EVENT DATE: 20180619
